FAERS Safety Report 5043603-6 (Version None)
Quarter: 2006Q2

REPORT INFORMATION
  Report Type: 
  Country: None (occurrence: None)
  Receive Date: 20060628
  Receipt Date: 20060616
  Transmission Date: 20061013
  Serious: Yes (Hospitalization)
  Sender: FDA-Public Use
  Company Number: HQWYE605131MAR06

PATIENT
  Age: 67 Year
  Sex: Male

DRUGS (4)
  1. GEMTUZUMAB OZOGAMICIN (GEMTUZUMAB OZOGAMICIN, INJECTION) [Suspect]
     Indication: ACUTE MYELOID LEUKAEMIA
     Dosage: 12 MG
     Dates: start: 20041013, end: 20041013
  2. CYTARABINE [Suspect]
     Indication: ACUTE MYELOID LEUKAEMIA
     Dosage: MICE INDUCTION CUMULATIVE DOSE 1400 MG
     Dates: start: 20041021, end: 20041027
  3. ETOPOSIDE [Suspect]
     Indication: ACUTE MYELOID LEUKAEMIA
     Dosage: MIC INDUCTION CUMULATIVE DOSE 1400 MG
     Dates: start: 20041021, end: 20041027
  4. NOVANTRONE [Suspect]
     Indication: ACUTE MYELOID LEUKAEMIA
     Dosage: MICE INDUCTION, CUMULATIVE DOSE 42 MG
     Dates: start: 20041021, end: 20041027

REACTIONS (2)
  - BRONCHOPULMONARY ASPERGILLOSIS [None]
  - SEPTIC SHOCK [None]
